FAERS Safety Report 24348956 (Version 2)
Quarter: 2024Q4

REPORT INFORMATION
  Report Type: Spontaneous
  Country: US (occurrence: US)
  Receive Date: 20240923
  Receipt Date: 20241005
  Transmission Date: 20250114
  Serious: Yes (Hospitalization, Other)
  Sender: AUROBINDO
  Company Number: US-AUROBINDO-AUR-APL-2024-045669

PATIENT
  Age: 35 Year
  Sex: Male

DRUGS (5)
  1. MODAFINIL [Suspect]
     Active Substance: MODAFINIL
     Indication: Depression
     Dosage: 200 MILLIGRAM, DAILY
     Route: 048
  2. MODAFINIL [Suspect]
     Active Substance: MODAFINIL
     Indication: Attention deficit hyperactivity disorder
     Dosage: THREE TIMES WEEKLY
     Route: 048
  3. HERBALS\WITHANIA SOMNIFERA ROOT [Concomitant]
     Active Substance: HERBALS\WITHANIA SOMNIFERA ROOT
     Indication: Product used for unknown indication
     Dosage: UNK
     Route: 065
  4. BUSPIRONE [Concomitant]
     Active Substance: BUSPIRONE HYDROCHLORIDE
     Indication: Product used for unknown indication
     Dosage: UNK
     Route: 065
  5. VITAMINS [Concomitant]
     Active Substance: VITAMINS
     Indication: Product used for unknown indication
     Dosage: UNK
     Route: 065

REACTIONS (3)
  - Myocardial ischaemia [Unknown]
  - Off label use [Unknown]
  - Treatment noncompliance [Unknown]
